FAERS Safety Report 20666750 (Version 1)
Quarter: 2022Q2

REPORT INFORMATION
  Report Type: Spontaneous
  Country: GB (occurrence: GB)
  Receive Date: 20220403
  Receipt Date: 20220403
  Transmission Date: 20220721
  Serious: Yes (Other)
  Sender: FDA-Public Use
  Company Number: GB-NOVARTISPH-NVSC2022GB072003

PATIENT
  Age: 50 Year
  Sex: Female

DRUGS (1)
  1. CARBAMAZEPINE [Suspect]
     Active Substance: CARBAMAZEPINE
     Indication: Epilepsy
     Dosage: UNK
     Route: 065

REACTIONS (6)
  - Stevens-Johnson syndrome [Unknown]
  - Skin exfoliation [Unknown]
  - Blister [Unknown]
  - Pyrexia [Unknown]
  - Rash [Unknown]
  - Hallucination [Unknown]
